FAERS Safety Report 7798392-9 (Version None)
Quarter: 2011Q4

REPORT INFORMATION
  Report Type: 
  Country: None (occurrence: None)
  Receive Date: 20111005
  Receipt Date: 20110817
  Transmission Date: 20120403
  Serious: No
  Sender: FDA-Public Use
  Company Number: US-BAYER-2011-074353

PATIENT
  Age: 52 Year
  Sex: Male

DRUGS (3)
  1. STAXYN [Suspect]
     Indication: ERECTILE DYSFUNCTION
     Dosage: 10 MG, PRN
     Route: 048
     Dates: start: 20110812, end: 20110812
  2. ANTIHYPERTENSIVES [Concomitant]
     Indication: HYPERTENSION
  3. ORAL ANTIDIABETICS [Concomitant]
     Indication: DIABETES MELLITUS

REACTIONS (1)
  - ERECTILE DYSFUNCTION [None]
